FAERS Safety Report 9738459 (Version 3)
Quarter: 2014Q2

REPORT INFORMATION
  Report Type: Report from Study
  Country: CA (occurrence: CA)
  Receive Date: 20131208
  Receipt Date: 20140526
  Transmission Date: 20141212
  Serious: Yes (Other)
  Sender: FDA-Public Use
  Company Number: CA-ROCHE-1288278

PATIENT
  Age: 45 Year
  Sex: Female
  Weight: 93 kg

DRUGS (7)
  1. ACTEMRA [Suspect]
     Indication: RHEUMATOID ARTHRITIS
     Route: 042
     Dates: start: 20100806
  2. ACTEMRA [Suspect]
     Route: 042
     Dates: start: 20101222
  3. ACTEMRA [Suspect]
     Route: 042
     Dates: end: 20111130
  4. ACTEMRA [Suspect]
     Route: 042
     Dates: start: 20120713
  5. RITUXAN [Suspect]
     Indication: RHEUMATOID ARTHRITIS
     Route: 042
     Dates: start: 20081014, end: 20100118
  6. CELEBREX [Concomitant]
  7. GABAPENTIN [Concomitant]

REACTIONS (4)
  - Road traffic accident [Unknown]
  - Hypotension [Unknown]
  - Fatigue [Unknown]
  - Arthralgia [Unknown]
